FAERS Safety Report 7872002-4 (Version None)
Quarter: 2011Q4

REPORT INFORMATION
  Report Type: 
  Country: None (occurrence: None)
  Receive Date: 20111029
  Receipt Date: 20110314
  Transmission Date: 20120403
  Serious: No
  Sender: FDA-Public Use
  Company Number: US-AMGEN-USASP2011013931

PATIENT
  Age: 62 Year
  Sex: Female

DRUGS (3)
  1. METHOTREXATE [Concomitant]
     Dosage: 3 MG, QWK
     Dates: start: 20070101
  2. ENBREL [Suspect]
     Indication: RHEUMATOID ARTHRITIS
     Dosage: 50 MG, QWK
     Dates: start: 20000115, end: 20100401
  3. CIMZIA [Concomitant]

REACTIONS (6)
  - MUSCULOSKELETAL PAIN [None]
  - FINGER DEFORMITY [None]
  - BACK PAIN [None]
  - DIZZINESS [None]
  - JOINT DESTRUCTION [None]
  - DIARRHOEA [None]
